FAERS Safety Report 15516996 (Version 1)
Quarter: 2018Q4

REPORT INFORMATION
  Report Type: Spontaneous
  Country: US (occurrence: US)
  Receive Date: 20181011
  Receipt Date: 20181011
  Transmission Date: 20190205
  Serious: No
  Sender: FDA-Public Use
  Company Number: None

PATIENT
  Age: 28 Year
  Sex: Female

DRUGS (1)
  1. SYMDEKO [Suspect]
     Active Substance: IVACAFTOR\TEZACAFTOR
     Dates: start: 201809

REACTIONS (4)
  - Laryngitis [None]
  - Fatigue [None]
  - Pharyngitis [None]
  - Dysphonia [None]

NARRATIVE: CASE EVENT DATE: 20181010
